FAERS Safety Report 7341355-8 (Version None)
Quarter: 2011Q1

REPORT INFORMATION
  Report Type: 
  Country: None (occurrence: None)
  Receive Date: 20110301
  Receipt Date: 20110211
  Transmission Date: 20110831
  Serious: Yes (Hospitalization)
  Sender: FDA-Public Use
  Company Number: ACO_21795_2011

PATIENT
  Age: 40 Year
  Sex: Female

DRUGS (2)
  1. CIPROFLOXACIN [Suspect]
     Indication: PRODUCT USED FOR UNKNOWN INDICATION
  2. ZANAFLEX [Suspect]
     Indication: PRODUCT USED FOR UNKNOWN INDICATION

REACTIONS (8)
  - BLOOD PRESSURE DECREASED [None]
  - GAIT DISTURBANCE [None]
  - HEART RATE INCREASED [None]
  - DRUG INTERACTION [None]
  - APHASIA [None]
  - CONSCIOUSNESS FLUCTUATING [None]
  - SEPSIS [None]
  - DISORIENTATION [None]
